FAERS Safety Report 4716695-9 (Version None)
Quarter: 2005Q3

REPORT INFORMATION
  Report Type: 
  Country: None (occurrence: None)
  Receive Date: 20050714
  Receipt Date: 20050705
  Transmission Date: 20060218
  Serious: Yes (Other)
  Sender: FDA-Public Use
  Company Number: 2005-07-0338

PATIENT

DRUGS (2)
  1. TEMODAR [Suspect]
     Dosage: ORAL
     Route: 048
  2. BACTRIM [Suspect]
     Dosage: ORAL
     Route: 048

REACTIONS (1)
  - HEPATIC ENZYME INCREASED [None]
